FAERS Safety Report 6456733-9 (Version None)
Quarter: 2009Q4

REPORT INFORMATION
  Report Type: 
  Country: None (occurrence: None)
  Receive Date: 20091119
  Receipt Date: 20090923
  Transmission Date: 20100525
  Serious: Yes (Death)
  Sender: FDA-Public Use
  Company Number: ADE09033-L

PATIENT

DRUGS (2)
  1. PROGESTERONE [Suspect]
     Indication: PREMATURE BABY
     Dosage: 90MG GEL, DAILY VAGINALLY,BEGUN @24 WKS
     Route: 067
  2. PROGESTERONE [Suspect]
     Indication: PROPHYLAXIS
     Dosage: 90MG GEL, DAILY VAGINALLY,BEGUN @24 WKS
     Route: 067

REACTIONS (3)
  - DEATH NEONATAL [None]
  - DRUG EXPOSURE DURING PREGNANCY [None]
  - INTRA-UTERINE DEATH [None]
